FAERS Safety Report 5498462-4 (Version None)
Quarter: 2007Q4

REPORT INFORMATION
  Report Type: 
  Country: None (occurrence: None)
  Receive Date: 20071024
  Receipt Date: 20060905
  Transmission Date: 20080405
  Serious: No
  Sender: FDA-Public Use
  Company Number: 8017536

PATIENT
  Age: 56 Year
  Sex: Female

DRUGS (12)
  1. THEO-24 [Suspect]
     Indication: ASTHMA
     Dosage: 1000 MG PO
     Route: 048
     Dates: start: 19860101, end: 20060619
  2. THEO-24 [Suspect]
     Indication: ASTHMA
     Dosage: 800 MG /D PO
     Route: 048
     Dates: start: 20060620, end: 20060621
  3. THEO-24 [Suspect]
     Indication: ASTHMA
     Dosage: 1000 MG /D PO
     Route: 048
     Dates: start: 20060622, end: 20060622
  4. THEO-24 [Suspect]
     Indication: ASTHMA
     Dosage: 800 MG /D PO
     Route: 048
     Dates: start: 20060623, end: 20060627
  5. THEO-24 [Suspect]
     Indication: ASTHMA
     Dosage: 1000 MG /D PO
     Route: 048
     Dates: start: 20060628, end: 20060628
  6. THEO-24 [Suspect]
     Indication: ASTHMA
     Dosage: 800 MG /D PO
     Route: 048
     Dates: start: 20060629, end: 20060701
  7. THEO-24 [Suspect]
     Indication: ASTHMA
     Dosage: 1000 MG PO
     Route: 048
     Dates: start: 20060701
  8. MAXAIR [Concomitant]
  9. NEXIUM [Concomitant]
  10. ESTRACE [Concomitant]
  11. IBUPROFEN [Concomitant]
  12. ZANTAC [Concomitant]

REACTIONS (6)
  - AGITATION [None]
  - AMNESIA [None]
  - ASTHMA [None]
  - DIZZINESS [None]
  - HEADACHE [None]
  - PALPITATIONS [None]
